FAERS Safety Report 6894690-1 (Version None)
Quarter: 2010Q3

REPORT INFORMATION
  Report Type: 
  Country: None (occurrence: None)
  Receive Date: 20100802
  Receipt Date: 20100723
  Transmission Date: 20110219
  Serious: Yes (Other)
  Sender: FDA-Public Use
  Company Number: US-ALLERGAN-1006551US

PATIENT
  Age: 50 Year
  Sex: Female

DRUGS (8)
  1. BOTOX [Suspect]
     Indication: SKIN WRINKLING
     Dosage: UNK
     Dates: start: 20100301, end: 20100301
  2. BOTOX [Suspect]
     Dosage: UNK
     Dates: start: 20091101, end: 20091101
  3. RESTYLANE [Suspect]
     Indication: SKIN WRINKLING
     Dosage: 0.4 ML, UNK
     Dates: start: 20100301, end: 20100301
  4. CRANBERRY PILLS [Concomitant]
  5. MULTIVITAMIN AND MINERAL [Concomitant]
  6. CLOBETASOL PROPIONATE [Concomitant]
     Indication: PSORIASIS
  7. LOVAZA [Concomitant]
  8. VITRAMIN D [Concomitant]

REACTIONS (2)
  - INJECTION SITE REACTION [None]
  - INJECTION SITE SWELLING [None]
